FAERS Safety Report 6234721-5 (Version None)
Quarter: 2009Q2

REPORT INFORMATION
  Report Type: 
  Country: None (occurrence: None)
  Receive Date: 20090616
  Receipt Date: 20090616
  Transmission Date: 20091009
  Serious: No
  Sender: FDA-Public Use
  Company Number: None

PATIENT
  Age: 58 Year
  Sex: Female
  Weight: 81.6475 kg

DRUGS (1)
  1. CYMBALTA [Suspect]
     Indication: FIBROMYALGIA
     Dosage: 60MG QD PO
     Route: 048
     Dates: start: 20090301, end: 20090527

REACTIONS (12)
  - ABNORMAL DREAMS [None]
  - ASTHENIA [None]
  - CHEST DISCOMFORT [None]
  - DEPRESSION [None]
  - FATIGUE [None]
  - HOT FLUSH [None]
  - HYPERHIDROSIS [None]
  - INFLUENZA [None]
  - PALPITATIONS [None]
  - PARAESTHESIA [None]
  - URINARY RETENTION [None]
  - VERTIGO [None]
